FAERS Safety Report 8140841-0 (Version None)
Quarter: 2012Q1

REPORT INFORMATION
  Report Type: 
  Country: None (occurrence: None)
  Receive Date: 20120214
  Receipt Date: 20120214
  Transmission Date: 20120608
  Serious: Yes (Hospitalization, Other)
  Sender: FDA-Public Use
  Company Number: None

PATIENT
  Age: 78 Year
  Sex: Male

DRUGS (5)
  1. REVLIMID [Suspect]
     Dosage: REVLIMID 25 MG 25 DAILY X21D/28D ORALLY
     Route: 048
     Dates: start: 20101001, end: 20110901
  2. FAMOTIDINE [Concomitant]
  3. ASPIRIN [Concomitant]
  4. HYDROCODONE BITARTRATE AND ACETAMINOPHEN [Concomitant]
  5. AMLODIPINE [Concomitant]

REACTIONS (3)
  - GASTROENTERITIS [None]
  - DIVERTICULUM [None]
  - COLITIS ISCHAEMIC [None]
